FAERS Safety Report 8542900-7 (Version None)
Quarter: 2012Q3

REPORT INFORMATION
  Report Type: 
  Country: None (occurrence: None)
  Receive Date: 20120727
  Receipt Date: 20120717
  Transmission Date: 20120928
  Serious: Yes (Other)
  Sender: FDA-Public Use
  Company Number: PL-AMGEN-POLSP2012045467

PATIENT
  Age: 62 Year
  Sex: Female
  Weight: 72 kg

DRUGS (7)
  1. METHOTREXATE [Concomitant]
     Dosage: 25 MG, WEEKLY
     Dates: start: 20090101
  2. LORAFEN [Concomitant]
     Dosage: 1 MG, UNK
     Route: 048
  3. DOXEPIN [Concomitant]
     Dosage: 25 MG, WEEKLY
     Route: 048
  4. TENOX                              /00393701/ [Concomitant]
     Indication: HYPERTENSION
     Dosage: 5 MG, UNK
     Route: 048
     Dates: start: 20020101
  5. ENBREL [Suspect]
     Indication: PRODUCT USED FOR UNKNOWN INDICATION
     Dosage: 50 MG, WEEKLY
     Route: 058
     Dates: start: 20120509, end: 20120613
  6. BISOPROMERCK [Concomitant]
     Indication: HYPERTENSION
     Dosage: 5 MG, UNK
     Dates: start: 20020101
  7. SULFASALAZINE [Concomitant]
     Indication: COLITIS ULCERATIVE
     Dosage: 2.0 G, UNK
     Route: 048
     Dates: start: 19970101

REACTIONS (5)
  - COUGH [None]
  - DYSPNOEA [None]
  - PRURITUS [None]
  - RHINORRHOEA [None]
  - ERYTHEMA [None]
